FAERS Safety Report 15861636 (Version 1)
Quarter: 2019Q1

REPORT INFORMATION
  Report Type: Spontaneous
  Country: DE (occurrence: DE)
  Receive Date: 20190124
  Receipt Date: 20190124
  Transmission Date: 20190417
  Serious: Yes (Other)
  Sender: FDA-Public Use
  Company Number: DE-DENTSPLY-2019SCDP000027

PATIENT
  Sex: Male

DRUGS (2)
  1. XYLOCAINE [Suspect]
     Active Substance: LIDOCAINE HYDROCHLORIDE
     Indication: URETHRAL OBSTRUCTION
     Dosage: IN COMBINATION WITH VOLON A SOLUBILE 40 MG
  2. VOLON A /00031902/ [Suspect]
     Active Substance: TRIAMCINOLONE ACETONIDE
     Indication: URETHRAL OBSTRUCTION
     Dosage: 40 MG, IN COMBINATION WITH XYLOCAIN,SOLUTION FOR INJECTION

REACTIONS (4)
  - Urethral obstruction [Unknown]
  - Product use in unapproved indication [Unknown]
  - Off label use [Unknown]
  - Product use issue [Unknown]
